FAERS Safety Report 21133972 (Version 1)
Quarter: 2022Q3

REPORT INFORMATION
  Report Type: Spontaneous
  Country: US (occurrence: US)
  Receive Date: 20220726
  Receipt Date: 20220726
  Transmission Date: 20221027
  Serious: No
  Sender: FDA-Public Use
  Company Number: US-OYSTER POINT PHARMA, INC.-2022OYS00639

PATIENT
  Age: 67 Year
  Sex: Female
  Weight: 76.19 kg

DRUGS (9)
  1. TYRVAYA [Suspect]
     Active Substance: VARENICLINE TARTRATE
     Indication: Dry eye
     Dosage: 1 SPRAY IN EACH NOSTRIL
     Route: 045
     Dates: start: 20220613, end: 20220613
  2. ZYRTEC [Concomitant]
     Active Substance: CETIRIZINE HYDROCHLORIDE
     Dosage: UNK, 1X/DAY
  3. XIIDRA [Concomitant]
     Active Substance: LIFITEGRAST
     Route: 047
  4. ^TEARS^ [Concomitant]
  5. TYLENOL ARTHRITIS PAIN [Concomitant]
     Active Substance: ACETAMINOPHEN
     Dosage: UNK, 1X/DAY
  6. ROSUVASTATIN [Concomitant]
     Active Substance: ROSUVASTATIN
     Dosage: UNK
  7. CALCIUM [Concomitant]
     Active Substance: CALCIUM
  8. VITAMIN D [Concomitant]
     Active Substance: VITAMIN D NOS
  9. ZINC/VITAMIN C [Concomitant]

REACTIONS (8)
  - Throat tightness [Recovered/Resolved]
  - Oropharyngeal pain [Recovered/Resolved]
  - Insomnia [Recovered/Resolved]
  - Nasal congestion [Recovering/Resolving]
  - Dysphonia [Recovering/Resolving]
  - Sneezing [Recovered/Resolved]
  - Throat irritation [Recovered/Resolved]
  - Nasal discomfort [Recovered/Resolved]

NARRATIVE: CASE EVENT DATE: 20220613
